FAERS Safety Report 16196964 (Version 2)
Quarter: 2019Q2

REPORT INFORMATION
  Report Type: Spontaneous
  Country: US (occurrence: US)
  Receive Date: 20190415
  Receipt Date: 20190422
  Transmission Date: 20190711
  Serious: No
  Sender: FDA-Public Use
  Company Number: US-PFIZER INC-2016582464

PATIENT
  Age: 42 Year
  Sex: Male
  Weight: 79.82 kg

DRUGS (11)
  1. NIZORAL [Concomitant]
     Active Substance: KETOCONAZOLE
     Dosage: UNK
     Dates: start: 20140502
  2. KEPPRA [Concomitant]
     Active Substance: LEVETIRACETAM
     Dosage: 1000 MG, 2X/DAY
     Route: 048
     Dates: start: 20120131
  3. NAPROXEN. [Concomitant]
     Active Substance: NAPROXEN
     Indication: MIGRAINE
  4. DILANTIN [Suspect]
     Active Substance: PHENYTOIN
     Indication: SEIZURE
     Dosage: 300 MG, 2X/DAY (1CAP IN AM, 2CAPS IN PM)
     Route: 048
     Dates: start: 20140113
  5. ZOLOFT [Concomitant]
     Active Substance: SERTRALINE HYDROCHLORIDE
     Indication: ANXIETY
     Dosage: 200 MG, DAILY
     Route: 048
     Dates: start: 20120810
  6. IMITREX [SUMATRIPTAN SUCCINATE] [Concomitant]
     Indication: HEADACHE
     Dosage: 100 MG, AS NEEDED
     Route: 048
     Dates: start: 20131011
  7. NAPROXEN. [Concomitant]
     Active Substance: NAPROXEN
     Indication: HEADACHE
     Dosage: 500 MG, AS NEEDED (ONE TABLET DAILY PRN)
     Dates: start: 20160210
  8. DILANTIN [Suspect]
     Active Substance: PHENYTOIN
     Dosage: 90 MG, 1X/DAY, (3 CAPS EVERY BED TIME)
     Route: 048
     Dates: start: 20161129
  9. DILANTIN [Suspect]
     Active Substance: PHENYTOIN
     Dosage: 390 MG, DAILY (1 100MG CAPSULE BY MOUTH IN MORNING, 2 100MG AND 3 30 MG)
     Route: 048
     Dates: start: 201611
  10. CLARITIN [Concomitant]
     Active Substance: LORATADINE
     Dosage: 10 MG, DAILY
     Route: 048
     Dates: start: 20130725
  11. PROMETHAZINE HCL [Concomitant]
     Active Substance: PROMETHAZINE HYDROCHLORIDE
     Dosage: 25 MG, 1X/DAY (1 PO Q HS)
     Route: 048
     Dates: start: 20160304

REACTIONS (6)
  - Bronchitis [Unknown]
  - Malaise [Unknown]
  - Influenza [Unknown]
  - Chest discomfort [Not Recovered/Not Resolved]
  - Product use issue [Unknown]
  - Speech disorder [Unknown]

NARRATIVE: CASE EVENT DATE: 201611
